FAERS Safety Report 9350711 (Version 1)
Quarter: 2013Q2

REPORT INFORMATION
  Report Type: Spontaneous
  Country: IT (occurrence: IT)
  Receive Date: 20130617
  Receipt Date: 20130617
  Transmission Date: 20140414
  Serious: Yes (Other)
  Sender: FDA-Public Use
  Company Number: PHHY2013IT060435

PATIENT
  Sex: Female

DRUGS (4)
  1. ZOLEDRONATE [Suspect]
     Indication: OSTEOPOROSIS
  2. ZOLEDRONATE [Suspect]
     Indication: OFF LABEL USE
  3. PAMIDRONATE [Suspect]
     Indication: OSTEOPOROSIS
     Dosage: UNK
  4. PAMIDRONATE [Suspect]
     Indication: OFF LABEL USE

REACTIONS (1)
  - Osteonecrosis of jaw [Unknown]
